FAERS Safety Report 14807731 (Version 1)
Quarter: 2018Q2

REPORT INFORMATION
  Report Type: Spontaneous
  Country: ZW (occurrence: ZW)
  Receive Date: 20180425
  Receipt Date: 20180425
  Transmission Date: 20180711
  Serious: Yes (Hospitalization)
  Sender: FDA-Public Use
  Company Number: ZW-PFIZER INC-2018163927

PATIENT
  Age: 66 Year
  Sex: Female

DRUGS (2)
  1. LOMANOR [Suspect]
     Active Substance: AMLODIPINE BESYLATE
     Indication: HYPERTENSION
     Dosage: 5 MG, 1X/DAY
     Route: 048
     Dates: start: 201801, end: 20180318
  2. DOMPERIDONE [Concomitant]
     Active Substance: DOMPERIDONE
     Indication: GASTROOESOPHAGEAL REFLUX DISEASE
     Dosage: 10 MG, 3X/DAY
     Route: 048
     Dates: start: 2011

REACTIONS (4)
  - Peripheral swelling [Recovered/Resolved]
  - Headache [Recovered/Resolved]
  - Blood pressure inadequately controlled [Recovered/Resolved]
  - Ocular hyperaemia [Recovered/Resolved]

NARRATIVE: CASE EVENT DATE: 20180318
